FAERS Safety Report 4523413-6 (Version None)
Quarter: 2004Q4

REPORT INFORMATION
  Report Type: 
  Country: None (occurrence: None)
  Receive Date: 20041209
  Receipt Date: 20041209
  Transmission Date: 20050328
  Serious: Yes (Other)
  Sender: FDA-Public Use
  Company Number: None

PATIENT
  Sex: Female
  Weight: 81.6475 kg

DRUGS (4)
  1. INTERFERON - BETA 1B [Suspect]
     Indication: MULTIPLE SCLEROSIS
     Dosage: .25 ML DOSE OF 250 MG EOD, PO
     Route: 048
     Dates: start: 20041101, end: 20041207
  2. INTERFERON - BETA 1B [Suspect]
  3. IBUPROFEN [Concomitant]
  4. NORTRIPTYLINE HCL [Concomitant]

REACTIONS (1)
  - HYPOTENSION [None]
